FAERS Safety Report 5723284-6 (Version None)
Quarter: 2008Q2

REPORT INFORMATION
  Report Type: 
  Country: None (occurrence: None)
  Receive Date: 20080430
  Receipt Date: 20080421
  Transmission Date: 20081010
  Serious: Yes (Hospitalization, Other)
  Sender: FDA-Public Use
  Company Number: US-ROCHE-527260

PATIENT
  Sex: Male
  Weight: 83.9 kg

DRUGS (1)
  1. ACCUTANE [Suspect]
     Indication: ACNE
     Route: 065
     Dates: start: 20000118, end: 20000613

REACTIONS (5)
  - CROHN'S DISEASE [None]
  - EOSINOPHILIC OESOPHAGITIS [None]
  - INFLAMMATORY BOWEL DISEASE [None]
  - PERIANAL ABSCESS [None]
  - PHARYNGITIS [None]
